FAERS Safety Report 12569600 (Version 1)
Quarter: 2016Q3

REPORT INFORMATION
  Report Type: Spontaneous
  Country: US (occurrence: None)
  Receive Date: 20160718
  Receipt Date: 20160718
  Transmission Date: 20161109
  Serious: No
  Sender: FDA-Public Use
  Company Number: None

PATIENT
  Age: 54 Year
  Sex: Female

DRUGS (1)
  1. SOVALDI [Suspect]
     Active Substance: SOFOSBUVIR
     Indication: CHRONIC HEPATITIS C
     Route: 048
     Dates: start: 20160525

REACTIONS (4)
  - Anxiety [None]
  - Bradyphrenia [None]
  - Fatigue [None]
  - Impaired driving ability [None]

NARRATIVE: CASE EVENT DATE: 20160525
